FAERS Safety Report 9630800 (Version 4)
Quarter: 2013Q4

REPORT INFORMATION
  Report Type: Report from Study
  Country: US (occurrence: US)
  Receive Date: 20131018
  Receipt Date: 20131212
  Transmission Date: 20140711
  Serious: Yes (Hospitalization)
  Sender: FDA-Public Use
  Company Number: US-JNJFOC-20131008583

PATIENT
  Age: 16 Year
  Sex: Male
  Weight: 50.3 kg

DRUGS (3)
  1. REMICADE [Suspect]
     Indication: CROHN^S DISEASE
     Route: 042
     Dates: start: 20100226, end: 20100329
  2. 6-MERCAPTOPURINE [Concomitant]
     Route: 065
  3. MULTIVITAMINS [Concomitant]
     Route: 065

REACTIONS (1)
  - Viral infection [Recovered/Resolved]
